FAERS Safety Report 10811921 (Version 1)
Quarter: 2015Q1

REPORT INFORMATION
  Report Type: Spontaneous
  Country: TR (occurrence: None)
  Receive Date: 20150212
  Receipt Date: 20150212
  Transmission Date: 20150721
  Serious: Yes (Hospitalization, Other)
  Sender: FDA-Public Use
  Company Number: 2015FE00346

PATIENT
  Age: 18 Year
  Sex: Male

DRUGS (1)
  1. MINIRIN [Suspect]
     Active Substance: DESMOPRESSIN ACETATE
     Indication: ENURESIS
     Route: 048

REACTIONS (5)
  - Dermatitis bullous [None]
  - Oral mucosa erosion [None]
  - Blister [None]
  - Skin exfoliation [None]
  - Mucosa vesicle [None]
